FAERS Safety Report 9216593 (Version 3)
Quarter: 2013Q2

REPORT INFORMATION
  Report Type: Spontaneous
  Country: BR (occurrence: BR)
  Receive Date: 20130408
  Receipt Date: 20130524
  Transmission Date: 20140414
  Serious: Yes (Other)
  Sender: FDA-Public Use
  Company Number: BR-AMGEN-BRASP2012061232

PATIENT
  Age: 55 Year
  Sex: Female
  Weight: 43 kg

DRUGS (9)
  1. ENBREL [Suspect]
     Indication: RHEUMATOID ARTHRITIS
     Dosage: 50 MG, ONCE WEEKLY
     Route: 058
     Dates: start: 20111025
  2. ENBREL [Suspect]
     Dosage: UNK
  3. METHOTREXATE [Suspect]
     Dosage: UNK
  4. FOLIC ACID [Concomitant]
     Indication: ANAEMIA
     Dosage: 5MG DAILY
     Route: 048
  5. ARADOIS [Concomitant]
     Indication: HYPERTENSION
     Dosage: 50 MG, ONCE DAILY
  6. RANITIDINE [Concomitant]
     Dosage: 150 MG, 2X/DAY
     Route: 048
  7. DEFLAZACORT [Concomitant]
     Dosage: 10 MG, 1X/DAY
     Route: 048
  8. NAPROXEN [Concomitant]
     Dosage: 500 MG, UNK
  9. DICLOFENAC POTASSIUM [Concomitant]
     Dosage: 100 MG, UNK

REACTIONS (6)
  - Arthropathy [Not Recovered/Not Resolved]
  - Osteoarthritis [Unknown]
  - Cartilage injury [Unknown]
  - Wrong technique in drug usage process [Not Recovered/Not Resolved]
  - Anaemia [Unknown]
  - Injection site pain [Not Recovered/Not Resolved]
